FAERS Safety Report 4434320-1 (Version None)
Quarter: 2004Q3

REPORT INFORMATION
  Report Type: 
  Country: None (occurrence: None)
  Receive Date: 20040826
  Receipt Date: 20040820
  Transmission Date: 20050211
  Serious: Yes (Hospitalization)
  Sender: FDA-Public Use
  Company Number: GB-MERCK-0408GBR00202

PATIENT
  Age: 77 Year
  Sex: Female

DRUGS (1)
  1. ZOCOR [Suspect]
     Route: 048
     Dates: start: 20040609, end: 20040101

REACTIONS (2)
  - ANAPHYLACTOID REACTION [None]
  - DIARRHOEA [None]
